FAERS Safety Report 5270397-1 (Version None)
Quarter: 2007Q1

REPORT INFORMATION
  Report Type: 
  Country: None (occurrence: None)
  Receive Date: 20070320
  Receipt Date: 20070309
  Transmission Date: 20070707
  Serious: Yes (Other)
  Sender: FDA-Public Use
  Company Number: US-PFIZER INC-2007018668

PATIENT
  Sex: Male
  Weight: 88.5 kg

DRUGS (4)
  1. LIPITOR [Suspect]
     Indication: BLOOD CHOLESTEROL INCREASED
  2. WELLBUTRIN [Concomitant]
  3. MAXZIDE [Concomitant]
  4. NORVASC [Concomitant]

REACTIONS (2)
  - MUSCULOSKELETAL DISORDER [None]
  - ROTATOR CUFF SYNDROME [None]
